FAERS Safety Report 7951718-5 (Version None)
Quarter: 2011Q4

REPORT INFORMATION
  Report Type: 
  Country: None (occurrence: None)
  Receive Date: 20111201
  Receipt Date: 20111121
  Transmission Date: 20120403
  Serious: Yes (Other)
  Sender: FDA-Public Use
  Company Number: US-ROCHE-1015745

PATIENT
  Sex: Female

DRUGS (1)
  1. CEFTRIAXONE [Suspect]
     Indication: LYME DISEASE
     Route: 042

REACTIONS (2)
  - RENAL FAILURE [None]
  - ANAEMIA HAEMOLYTIC AUTOIMMUNE [None]
